FAERS Safety Report 5058213-4 (Version None)
Quarter: 2006Q3

REPORT INFORMATION
  Report Type: 
  Country: None (occurrence: None)
  Receive Date: 20060721
  Receipt Date: 20060718
  Transmission Date: 20061208
  Serious: Yes (Death, Life-Threatening)
  Sender: FDA-Public Use
  Company Number: 2006UW14729

PATIENT
  Age: 52 Year
  Sex: Male

DRUGS (2)
  1. CRESTOR [Suspect]
     Route: 048
  2. ANTIBIOTIC [Concomitant]
     Indication: INFECTION

REACTIONS (5)
  - ALANINE AMINOTRANSFERASE INCREASED [None]
  - DEATH [None]
  - HEPATIC ENZYME INCREASED [None]
  - NAUSEA [None]
  - SEPSIS [None]
